FAERS Safety Report 7053831-6 (Version None)
Quarter: 2010Q4

REPORT INFORMATION
  Report Type: 
  Country: None (occurrence: None)
  Receive Date: 20101020
  Receipt Date: 20101006
  Transmission Date: 20110411
  Serious: Yes (Hospitalization, Disabling)
  Sender: FDA-Public Use
  Company Number: PHHY2010US58008

PATIENT
  Sex: Male

DRUGS (5)
  1. CLOZARIL [Suspect]
     Indication: SCHIZOPHRENIA
  2. SEROQUEL [Suspect]
     Indication: SCHIZOPHRENIA
     Dosage: UNK
  3. LUVOX [Concomitant]
     Route: 048
  4. STELAZINE [Concomitant]
     Route: 048
  5. COGENTIN [Concomitant]
     Route: 048

REACTIONS (6)
  - ATAXIA [None]
  - DECREASED APPETITE [None]
  - DROOLING [None]
  - DRUG TOXICITY [None]
  - DYSARTHRIA [None]
  - EATING DISORDER [None]
